FAERS Safety Report 7812714-1 (Version None)
Quarter: 2011Q4

REPORT INFORMATION
  Report Type: 
  Country: None (occurrence: None)
  Receive Date: 20111013
  Receipt Date: 20111003
  Transmission Date: 20120403
  Serious: Yes (Hospitalization)
  Sender: FDA-Public Use
  Company Number: US-ACTELION-A-NJ2011-44978

PATIENT

DRUGS (2)
  1. TRACLEER [Suspect]
     Indication: PULMONARY ARTERIAL HYPERTENSION
     Dosage: UNK
     Route: 048
     Dates: start: 20080125
  2. REVATIO [Concomitant]

REACTIONS (9)
  - EATING DISORDER [None]
  - PERIPHERAL COLDNESS [None]
  - SWELLING [None]
  - INFUSION SITE SWELLING [None]
  - ASCITES [None]
  - GINGIVAL PAIN [None]
  - WEIGHT DECREASED [None]
  - PAIN IN JAW [None]
  - INFECTION [None]
